FAERS Safety Report 4607477-7 (Version None)
Quarter: 2005Q1

REPORT INFORMATION
  Report Type: 
  Country: None (occurrence: None)
  Receive Date: 20050310
  Receipt Date: 20050228
  Transmission Date: 20050727
  Serious: Yes (Other)
  Sender: FDA-Public Use
  Company Number: 2005001070

PATIENT
  Sex: Female

DRUGS (2)
  1. DEPO-PROVERA [Suspect]
     Indication: MENSTRUAL DISCOMFORT
     Dosage: 150 MG (150 MG, EVERY 3 MONTHS, 1ST INJECTION)
     Dates: start: 20010101, end: 20010101
  2. CLONAZEPAM [Concomitant]

REACTIONS (4)
  - AMENORRHOEA [None]
  - MENSTRUATION IRREGULAR [None]
  - PAPILLOMA VIRAL INFECTION [None]
  - UTERINE CANCER [None]
